FAERS Safety Report 5002273-3 (Version None)
Quarter: 2006Q2

REPORT INFORMATION
  Report Type: 
  Country: None (occurrence: None)
  Receive Date: 20060511
  Receipt Date: 20060511
  Transmission Date: 20061013
  Serious: No
  Sender: FDA-Public Use
  Company Number: None

PATIENT
  Age: 81 Year
  Sex: Female
  Weight: 80.2867 kg

DRUGS (2)
  1. LEVAQUIN [Suspect]
     Indication: BRONCHIAL HYPERACTIVITY
     Dosage: 500 MG IV DAILY
     Dates: start: 20060303, end: 20060311
  2. LEVAQUIN [Suspect]
     Indication: PNEUMONIA
     Dosage: 500 MG IV DAILY
     Dates: start: 20060303, end: 20060311

REACTIONS (1)
  - VENTRICULAR TACHYCARDIA [None]
